FAERS Safety Report 5879406-X (Version None)
Quarter: 2008Q3

REPORT INFORMATION
  Report Type: 
  Country: None (occurrence: None)
  Receive Date: 20080912
  Receipt Date: 20080910
  Transmission Date: 20090109
  Serious: Yes (Life-Threatening)
  Sender: FDA-Public Use
  Company Number: B0535391A

PATIENT
  Age: 83 Year
  Sex: Female
  Weight: 86 kg

DRUGS (6)
  1. ARIXTRA [Suspect]
     Indication: PHLEBITIS
     Dosage: 7.5MG PER DAY
     Route: 058
     Dates: start: 20080803, end: 20080814
  2. ALLOPURINOL [Concomitant]
     Dosage: 1UNIT PER DAY
     Route: 065
  3. ASPIRIN [Concomitant]
     Dosage: 75MG PER DAY
     Route: 065
  4. GLUCOPHAGE [Concomitant]
     Dosage: 1000MG PER DAY
     Route: 065
  5. GLIBENESE [Concomitant]
     Dosage: 5MG THREE TIMES PER DAY
     Route: 065
  6. CRESTOR [Concomitant]
     Dosage: 1UNIT PER DAY
     Route: 065

REACTIONS (5)
  - HAEMOGLOBIN DECREASED [None]
  - INJECTION SITE HAEMATOMA [None]
  - PLATELET COUNT DECREASED [None]
  - RED BLOOD CELL COUNT DECREASED [None]
  - SHOCK HAEMORRHAGIC [None]
